FAERS Safety Report 4349171-6 (Version None)
Quarter: 2004Q2

REPORT INFORMATION
  Report Type: 
  Country: None (occurrence: None)
  Receive Date: 20040427
  Receipt Date: 20030618
  Transmission Date: 20050107
  Serious: Yes (Death, Life-Threatening)
  Sender: FDA-Public Use
  Company Number: 000552

PATIENT
  Age: 59 Year
  Sex: Male

DRUGS (4)
  1. ZEVALIN [Suspect]
     Indication: NON-HODGKIN'S LYMPHOMA
     Dosage: SINGLE, RITUXAN DOSE 1, INTRAVENOUS
     Route: 042
     Dates: start: 20030423, end: 20030423
  2. ZEVALIN [Suspect]
     Dosage: SINGLE, IN-[111] ZEVALIN, INTRAVENOUS
     Route: 042
     Dates: start: 20030423, end: 20030423
  3. ZEVALIN [Suspect]
     Dosage: 250 MG/M2, RITUXAN DOSE 2, INTRAVENOUS
     Route: 042
     Dates: start: 20030430, end: 20030430
  4. ZEVALIN [Suspect]
     Dosage: 31.44 MCI, SINGLE, Y-[90] ZEVALIN, INTRAVENOUS
     Route: 042
     Dates: start: 20030430, end: 20030430

REACTIONS (2)
  - PANCYTOPENIA [None]
  - SEPSIS [None]
